FAERS Safety Report 4838091-6 (Version None)
Quarter: 2005Q4

REPORT INFORMATION
  Report Type: 
  Country: None (occurrence: None)
  Receive Date: 20051128
  Receipt Date: 20051021
  Transmission Date: 20060501
  Serious: Yes (Hospitalization)
  Sender: FDA-Public Use
  Company Number: 2005AP05520

PATIENT
  Age: 29846 Day
  Sex: Male
  Weight: 45.5 kg

DRUGS (2)
  1. MARCAINE [Suspect]
     Indication: SPINAL ANAESTHESIA
     Route: 037
     Dates: start: 20051006, end: 20051006
  2. EPHEDRIN [Concomitant]
     Indication: BLOOD PRESSURE DECREASED
     Route: 042
     Dates: start: 20051006, end: 20051006

REACTIONS (4)
  - BLOOD PRESSURE DECREASED [None]
  - INTERVERTEBRAL DISC PROTRUSION [None]
  - NEUROLOGICAL SYMPTOM [None]
  - PAIN IN EXTREMITY [None]
